FAERS Safety Report 8502717-6 (Version None)
Quarter: 2012Q3

REPORT INFORMATION
  Report Type: 
  Country: None (occurrence: None)
  Receive Date: 20120706
  Receipt Date: 20120706
  Transmission Date: 20120928
  Serious: Yes (Disabling, Other)
  Sender: FDA-Public Use
  Company Number: None

PATIENT
  Age: 49 Year
  Sex: Female
  Weight: 47.1741 kg

DRUGS (1)
  1. CHANTIX [Suspect]
     Indication: SMOKING CESSATION THERAPY
     Dates: start: 20090601, end: 20091201

REACTIONS (7)
  - FEELING ABNORMAL [None]
  - ANGER [None]
  - INSOMNIA [None]
  - FAMILY STRESS [None]
  - DEPRESSION [None]
  - DIZZINESS [None]
  - PERSONALITY CHANGE [None]
